FAERS Safety Report 16705180 (Version 2)
Quarter: 2019Q3

REPORT INFORMATION
  Report Type: Spontaneous
  Country: JP (occurrence: JP)
  Receive Date: 20190815
  Receipt Date: 20190930
  Transmission Date: 20191004
  Serious: Yes (Hospitalization, Other)
  Sender: FDA-Public Use
  Company Number: JP-AMGEN-JPNSP2019121937

PATIENT
  Age: 70 Year
  Sex: Female
  Weight: 37 kg

DRUGS (25)
  1. FUROSEMIDE. [Concomitant]
     Active Substance: FUROSEMIDE
     Indication: HYPERTENSION
     Dosage: 10 MG, QD
     Route: 048
     Dates: end: 20190328
  2. BETAHISTINE MESILATE [Concomitant]
     Active Substance: BETAHISTINE MESILATE
     Dosage: 6 MILLIGRAM, TID
     Route: 048
  3. BETAHISTINE MESILATE [Concomitant]
     Active Substance: BETAHISTINE MESILATE
     Dosage: 6 MG, TID
     Route: 048
  4. PREDNISOLONE. [Concomitant]
     Active Substance: PREDNISOLONE
     Indication: RHEUMATOID ARTHRITIS
     Dosage: 4 MILLIGRAM, QD
     Route: 048
  5. CARERAM [Concomitant]
     Active Substance: IGURATIMOD
     Dosage: 25 MG, BID
     Route: 048
  6. METOCLOPRAMIDE. [Concomitant]
     Active Substance: METOCLOPRAMIDE
     Dosage: 5 MG, TID
     Route: 048
     Dates: end: 20190328
  7. PREDNISOLONE. [Concomitant]
     Active Substance: PREDNISOLONE
     Dosage: 4 MG, QD
     Route: 048
  8. CARERAM [Concomitant]
     Active Substance: IGURATIMOD
     Indication: RHEUMATOID ARTHRITIS
     Dosage: 25 MILLIGRAM, BID
     Route: 048
  9. PRALIA [Suspect]
     Active Substance: DENOSUMAB
     Indication: OSTEOPOROSIS
     Dosage: 60 MILLIGRAM, Q6MO
     Route: 065
     Dates: start: 20171214, end: 20190314
  10. LOXOPROFEN NA [Concomitant]
     Active Substance: LOXOPROFEN SODIUM
     Dosage: 60 MG, TID, AFTER EACH MEAL
     Route: 048
     Dates: start: 20170620, end: 20190328
  11. ANTEBATE [Concomitant]
     Active Substance: BETAMETHASONE DIPROPIONATE
     Dosage: APPLY 2-3 TIMES A DAY, ITCHY PLACE
     Dates: start: 20170124
  12. AMLODIPINE [Concomitant]
     Active Substance: AMLODIPINE BESYLATE
     Indication: HYPERTENSION
     Dosage: 10 MILLIGRAM, QD
     Route: 048
  13. REBAMIPIDE [Concomitant]
     Active Substance: REBAMIPIDE
     Dosage: 100 MG, TID
     Route: 048
     Dates: end: 20190328
  14. ACIDLESS [Concomitant]
     Active Substance: ALUMINUM HYDROXIDE\MAGNESIUM HYDROXIDE
     Dosage: UNK
     Route: 048
     Dates: start: 20180412, end: 20190328
  15. BIO-THREE [Concomitant]
     Active Substance: HERBALS
     Dosage: 2 DF, TID, AFTER EACH MEAL
     Route: 048
     Dates: start: 20181130, end: 20190328
  16. CANDESARTAN. [Concomitant]
     Active Substance: CANDESARTAN
     Indication: HYPERTENSION
     Dosage: 8 MILLIGRAM, QD
     Route: 048
     Dates: end: 20190328
  17. MOSAPRIDE CITRATE [Concomitant]
     Active Substance: MOSAPRIDE CITRATE
     Dosage: 5 MG, TID
     Route: 048
     Dates: end: 20190328
  18. CALONAL [Concomitant]
     Active Substance: ACETAMINOPHEN
     Dosage: 400 MG, BID, AFTER BREAKFAST AND DINNER
     Route: 048
     Dates: start: 20170707
  19. ORADOL [Concomitant]
     Dosage: UNK, TID, MELT IN THE MOUTH WITHOUT CHEWING
     Route: 065
     Dates: start: 20160607, end: 20190328
  20. HEPARINOID [Concomitant]
     Active Substance: CHONDROITIN SULFATE (BOVINE)
     Dosage: APPLY 2-3 TIMES A DAY, ITCHY PLACE
     Dates: start: 20170124
  21. NEXIUM [Concomitant]
     Active Substance: ESOMEPRAZOLE MAGNESIUM
     Indication: GASTROOESOPHAGEAL REFLUX DISEASE
     Dosage: 20 MILLIGRAM, QD
     Route: 048
  22. DIFENIDOL HYDROCHLORIDE [Concomitant]
     Active Substance: DIPHENIDOL HYDROCHLORIDE
     Dosage: 25 MG, TID
     Route: 048
  23. ACIDLESS [Concomitant]
     Active Substance: ALUMINUM HYDROXIDE\MAGNESIUM HYDROXIDE
     Dosage: 10 ML, BID, AFTER BREAKFAST AND DINNE
     Route: 048
     Dates: start: 20180322, end: 20180411
  24. ACTONEL [Suspect]
     Active Substance: RISEDRONATE SODIUM
     Indication: OSTEOPOROSIS
     Dosage: UNK
     Route: 048
     Dates: end: 20171109
  25. DIFENIDOL HYDROCHLORIDE [Concomitant]
     Active Substance: DIPHENIDOL HYDROCHLORIDE
     Dosage: 25 MILLIGRAM, TID
     Route: 048

REACTIONS (2)
  - Sepsis [Recovered/Resolved]
  - Osteonecrosis of jaw [Unknown]

NARRATIVE: CASE EVENT DATE: 20190322
